FAERS Safety Report 19316667 (Version 4)
Quarter: 2021Q3

REPORT INFORMATION
  Report Type: Spontaneous
  Country: US (occurrence: DE)
  Receive Date: 20210527
  Receipt Date: 20210803
  Transmission Date: 20211014
  Serious: Yes (Hospitalization, Other)
  Sender: FDA-Public Use
  Company Number: DE-ELI_LILLY_AND_COMPANY-DE202105007686

PATIENT
  Age: 79 Year
  Sex: Male

DRUGS (2)
  1. SELPERCATINIB. [Suspect]
     Active Substance: SELPERCATINIB
     Indication: NEOPLASM MALIGNANT
     Dosage: 80 MG, BID
     Route: 065
     Dates: start: 20210320
  2. COMIRNATY [Suspect]
     Active Substance: TOZINAMERAN
     Indication: COVID-19 IMMUNISATION
     Dosage: 1 DOSAGE FORM, SINGLE
     Route: 065
     Dates: start: 20210407, end: 20210407

REACTIONS (8)
  - Movement disorder [Recovering/Resolving]
  - Hyperhidrosis [Recovering/Resolving]
  - Amnesia [Recovering/Resolving]
  - Confusional state [Recovering/Resolving]
  - Gait disturbance [Recovering/Resolving]
  - Disorientation [Recovering/Resolving]
  - Asthenia [Recovering/Resolving]
  - Hypercoagulation [Unknown]

NARRATIVE: CASE EVENT DATE: 2021
